FAERS Safety Report 4510806-6 (Version None)
Quarter: 2004Q4

REPORT INFORMATION
  Report Type: 
  Country: None (occurrence: None)
  Receive Date: 20041122
  Receipt Date: 20041112
  Transmission Date: 20050328
  Serious: Yes (Death, Other)
  Sender: FDA-Public Use
  Company Number: STA-AE-04-MTX-566

PATIENT
  Age: 61 Year
  Sex: Male

DRUGS (7)
  1. METHOTREXATE [Suspect]
     Dosage: 25 MG, ORAL
     Route: 048
     Dates: end: 20040221
  2. ENBREL [Suspect]
     Indication: RHEUMATOID ARTHRITIS
     Dosage: IM
     Route: 030
     Dates: start: 20030606
  3. OMEGA-3 TRIGLYCERIDES (OMEGA-3 TRIGLYCERIDES) [Concomitant]
  4. CALCICHEW (CALCIUM CARBONATE) [Concomitant]
  5. MULTIBIONTA (ASCORBIC ACID/CALCIUM PANTOTHENATE/CYANOCOBALAMIN/NICOTIN [Concomitant]
  6. ALENDRONATE SODIUM [Concomitant]
  7. PREDNISOLONE [Concomitant]

REACTIONS (2)
  - EYE DISORDER [None]
  - MYOCARDIAL INFARCTION [None]
